FAERS Safety Report 9662586 (Version 2)
Quarter: 2013Q4

REPORT INFORMATION
  Report Type: Spontaneous
  Country: US (occurrence: US)
  Receive Date: 20131031
  Receipt Date: 20131031
  Transmission Date: 20140711
  Serious: No
  Sender: FDA-Public Use
  Company Number: US-PURDUE-USA-2010-0050146

PATIENT
  Age: 27 Year
  Sex: Female

DRUGS (1)
  1. OXYCONTIN (NDA 22-272) [Suspect]
     Indication: PAIN
     Dosage: 30 MG, UNK
     Route: 048

REACTIONS (9)
  - Nausea [Unknown]
  - Abdominal pain upper [Unknown]
  - Vomiting [Unknown]
  - Drug ineffective [Unknown]
  - Sweating fever [Unknown]
  - Intentional drug misuse [Unknown]
  - Constipation [Unknown]
  - Infrequent bowel movements [Unknown]
  - Faeces hard [Unknown]
